FAERS Safety Report 6823827-5 (Version None)
Quarter: 2010Q3

REPORT INFORMATION
  Report Type: 
  Country: None (occurrence: None)
  Receive Date: 20100708
  Receipt Date: 20060906
  Transmission Date: 20110219
  Serious: Yes (Other)
  Sender: FDA-Public Use
  Company Number: US-PFIZER INC-2006110971

PATIENT
  Sex: Female

DRUGS (3)
  1. CHANTIX [Suspect]
     Indication: SMOKING CESSATION THERAPY
     Dates: start: 20060903
  2. WELLBUTRIN [Suspect]
     Indication: SMOKING CESSATION THERAPY
  3. KLONOPIN [Concomitant]

REACTIONS (3)
  - HYPERPHAGIA [None]
  - TOBACCO USER [None]
  - WEIGHT INCREASED [None]
